FAERS Safety Report 21394297 (Version 1)
Quarter: 2022Q3

REPORT INFORMATION
  Report Type: Spontaneous
  Country: DK (occurrence: DK)
  Receive Date: 20220930
  Receipt Date: 20220930
  Transmission Date: 20221027
  Serious: Yes (Other)
  Sender: FDA-Public Use
  Company Number: None

PATIENT
  Age: 35 Year
  Sex: Male

DRUGS (1)
  1. DIAZEPAM [Suspect]
     Active Substance: DIAZEPAM
     Indication: Withdrawal syndrome
     Dosage: START DATE UNKNOWN BUT AT LEAST SINCE 2012. DOSAGE: UNKNOWN . STRENGTH: UNKNOWN
     Route: 065
     Dates: end: 2019

REACTIONS (6)
  - Fatigue [Not Recovered/Not Resolved]
  - Amnesia [Not Recovered/Not Resolved]
  - Drug abuse [Recovered/Resolved]
  - Withdrawal syndrome [Unknown]
  - Drug dependence [Unknown]
  - Asthenia [Not Recovered/Not Resolved]
